FAERS Safety Report 8922358 (Version 1)
Quarter: 2012Q4

REPORT INFORMATION
  Report Type: 
  Country: US (occurrence: US)
  Receive Date: 20121123
  Receipt Date: 20121123
  Transmission Date: 20130627
  Serious: Yes (Other)
  Sender: FDA-Public Use
  Company Number: US-JNJFOC-20121108954

PATIENT
  Age: 54 Year
  Sex: Female

DRUGS (7)
  1. STELARA [Suspect]
     Indication: PSORIASIS
     Route: 058
     Dates: start: 20110302, end: 2012
  2. PROZAC [Concomitant]
     Route: 065
  3. CLONAPAM [Concomitant]
     Route: 065
  4. TEGRETOL [Concomitant]
     Route: 065
  5. CORMAX [Concomitant]
     Route: 065
  6. DOVONEX [Concomitant]
     Route: 065
  7. UNKNOWN MEDICATION [Concomitant]
     Route: 065

REACTIONS (1)
  - Breast cancer [Not Recovered/Not Resolved]
